FAERS Safety Report 5912216-3 (Version None)
Quarter: 2008Q4

REPORT INFORMATION
  Report Type: 
  Country: None (occurrence: None)
  Receive Date: 20081008
  Receipt Date: 20080925
  Transmission Date: 20090506
  Serious: Yes (Hospitalization)
  Sender: FDA-Public Use
  Company Number: PHHO2008US11802

PATIENT
  Sex: Female
  Weight: 82.7 kg

DRUGS (1)
  1. ALISKIREN / HCTZ ALH+TAB [Suspect]
     Indication: HYPERTENSION
     Dosage: DOUBLE BLIND
     Route: 048
     Dates: start: 20080819, end: 20080922

REACTIONS (5)
  - CHEST PAIN [None]
  - HYPOKALAEMIA [None]
  - MUSCLE SPASMS [None]
  - MUSCULOSKELETAL CHEST PAIN [None]
  - RHABDOMYOLYSIS [None]
